FAERS Safety Report 6196233-7 (Version None)
Quarter: 2009Q2

REPORT INFORMATION
  Report Type: 
  Country: None (occurrence: None)
  Receive Date: 20090520
  Receipt Date: 20090507
  Transmission Date: 20091009
  Serious: Yes (Hospitalization, Other)
  Sender: FDA-Public Use
  Company Number: PHHY2009JP17511

PATIENT
  Sex: Female
  Weight: 66 kg

DRUGS (3)
  1. DIOVAN T30230+TAB+HY [Suspect]
     Dosage: 80 MG, QD
     Route: 048
     Dates: start: 20071107, end: 20071206
  2. FAMOTIDINE [Concomitant]
     Dosage: 1 DF, UNK
     Route: 048
     Dates: start: 20071107, end: 20071206
  3. MAGMITT [Concomitant]
     Dosage: 4 DF, UNK
     Route: 048
     Dates: start: 20071107, end: 20071206

REACTIONS (3)
  - CARDITIS [None]
  - MENINGITIS [None]
  - PYREXIA [None]
